FAERS Safety Report 7980162-X (Version None)
Quarter: 2011Q4

REPORT INFORMATION
  Report Type: 
  Country: None (occurrence: None)
  Receive Date: 20111214
  Receipt Date: 20111207
  Transmission Date: 20120403
  Serious: Yes (Other)
  Sender: FDA-Public Use
  Company Number: PHEH2011US011253

PATIENT
  Sex: Female

DRUGS (2)
  1. GLEEVEC [Suspect]
     Dates: end: 20110901
  2. GLEEVEC [Suspect]
     Indication: CHRONIC MYELOID LEUKAEMIA
     Dates: start: 20091001

REACTIONS (2)
  - PANCYTOPENIA [None]
  - IRON DEFICIENCY ANAEMIA [None]
